FAERS Safety Report 5339955-X (Version None)
Quarter: 2007Q2

REPORT INFORMATION
  Report Type: 
  Country: None (occurrence: None)
  Receive Date: 20070529
  Receipt Date: 20070511
  Transmission Date: 20071010
  Serious: Yes (Other)
  Sender: FDA-Public Use
  Company Number: DSA_27706_2006

PATIENT
  Age: 59 Year
  Sex: Female

DRUGS (16)
  1. VASOTEC [Suspect]
  2. VASOTEC [Suspect]
     Dosage: 20 MG QD UNKNOWN
     Route: 065
  3. VIOXX [Suspect]
     Indication: ARTHRITIS
  4. ELAVIL [Suspect]
  5. HYDROXYZINE HYDROCHLORIDE [Concomitant]
  6. PROPRANOLOL HYDROCHLORIDE [Concomitant]
  7. ACETAMINOPHEN W/PROPOXYPHENE [Concomitant]
  8. CALCIUM CHLORIDE [Concomitant]
  9. POTASSIUM ACETATE [Concomitant]
  10. ATROVENT [Concomitant]
  11. ALBUTEROL [Concomitant]
  12. AZMACORT [Concomitant]
  13. LOMOTIL [Concomitant]
  14. CHLORDIAZEPOXIDE HCL [Concomitant]
  15. SUMATRIPTAN SUCCINATE [Concomitant]
  16. AMLODIPINE BESYLATE [Concomitant]

REACTIONS (9)
  - BLOOD PRESSURE INCREASED [None]
  - BUNDLE BRANCH BLOCK LEFT [None]
  - CONSTIPATION [None]
  - DECREASED APPETITE [None]
  - DILATATION VENTRICULAR [None]
  - EJECTION FRACTION DECREASED [None]
  - MYOCARDIAL ISCHAEMIA [None]
  - TREMOR [None]
  - WEIGHT INCREASED [None]
